FAERS Safety Report 5511995-7 (Version None)
Quarter: 2007Q4

REPORT INFORMATION
  Report Type: 
  Country: None (occurrence: None)
  Receive Date: 20071109
  Receipt Date: 20071029
  Transmission Date: 20080405
  Serious: Yes (Hospitalization, Other)
  Sender: FDA-Public Use
  Company Number: DE-MERCK-0708USA01657

PATIENT
  Age: 80 Year
  Sex: Female
  Weight: 60 kg

DRUGS (4)
  1. MODURETIC 5-50 [Suspect]
     Indication: HYPERTENSION
     Route: 048
     Dates: end: 20070424
  2. MODURETIC 5-50 [Suspect]
     Indication: CARDIAC FAILURE
     Route: 048
     Dates: end: 20070424
  3. TORSEMIDE [Concomitant]
     Indication: CARDIAC FAILURE
     Route: 048
  4. ISOPTIN [Concomitant]
     Route: 048

REACTIONS (6)
  - BLOOD CREATININE INCREASED [None]
  - BLOOD POTASSIUM INCREASED [None]
  - BLOOD UREA INCREASED [None]
  - RENAL FAILURE [None]
  - SINUS BRADYCARDIA [None]
  - SINUS TACHYCARDIA [None]
